FAERS Safety Report 7750722-X (Version None)
Quarter: 2011Q3

REPORT INFORMATION
  Report Type: 
  Country: None (occurrence: None)
  Receive Date: 20110912
  Receipt Date: 20110907
  Transmission Date: 20111222
  Serious: Yes (Hospitalization, Other)
  Sender: FDA-Public Use
  Company Number: 2011SP042416

PATIENT
  Age: 59 Year
  Sex: Male

DRUGS (2)
  1. TEMODAL [Suspect]
     Indication: GLIOBLASTOMA MULTIFORME
     Dosage: 360 MG/M2;QD;PO, 1900 MG/M2;ONCE;PO,
     Route: 048
     Dates: start: 20110907, end: 20110907
  2. TEMODAL [Suspect]
     Indication: GLIOBLASTOMA MULTIFORME
     Dosage: 360 MG/M2;QD;PO, 1900 MG/M2;ONCE;PO,
     Route: 048
     Dates: end: 20110906

REACTIONS (4)
  - ANXIETY [None]
  - NEUROSIS [None]
  - PANIC DISORDER [None]
  - OVERDOSE [None]
